FAERS Safety Report 7481277-5 (Version None)
Quarter: 2011Q2

REPORT INFORMATION
  Report Type: 
  Country: None (occurrence: None)
  Receive Date: 20110506
  Receipt Date: 20110425
  Transmission Date: 20111010
  Serious: Yes (Hospitalization, Other)
  Sender: FDA-Public Use
  Company Number: 2011ZX000045

PATIENT
  Age: 60 Year
  Sex: Female
  Weight: 57.1532 kg

DRUGS (10)
  1. FIORICET W/ CODEINE [Concomitant]
  2. SUMAVEL DOSEPRO [Suspect]
     Indication: MIGRAINE
     Dates: start: 20100101
  3. OXYCODONE HCL [Concomitant]
  4. FENTANYL [Concomitant]
  5. LIDODERM [Concomitant]
  6. DEMEROL [Concomitant]
  7. CYMBALTA [Concomitant]
  8. RESTORIL [Concomitant]
  9. ESTRADIOL [Concomitant]
  10. PHENERGAN HCL [Concomitant]

REACTIONS (12)
  - INJECTION SITE PAIN [None]
  - BLOOD PRESSURE DIASTOLIC DECREASED [None]
  - OXYGEN SATURATION DECREASED [None]
  - INJECTION SITE SWELLING [None]
  - BLOOD ALKALINE PHOSPHATASE INCREASED [None]
  - INCORRECT DOSE ADMINISTERED BY DEVICE [None]
  - INTRACRANIAL ANEURYSM [None]
  - ASPARTATE AMINOTRANSFERASE INCREASED [None]
  - HYPOAESTHESIA [None]
  - ALANINE AMINOTRANSFERASE INCREASED [None]
  - PROCEDURAL COMPLICATION [None]
  - INJECTION SITE HAEMATOMA [None]
